FAERS Safety Report 4713006-X (Version None)
Quarter: 2005Q3

REPORT INFORMATION
  Report Type: 
  Country: None (occurrence: None)
  Receive Date: 20050711
  Receipt Date: 20050628
  Transmission Date: 20060218
  Serious: Yes (Hospitalization, Other)
  Sender: FDA-Public Use
  Company Number: HQWYE511816JUN05

PATIENT
  Age: 62 Year
  Sex: Male

DRUGS (4)
  1. MINOMYCIN (MINOCYCLINE, INJECTION) [Suspect]
     Indication: RICKETTSIOSIS
     Dosage: 200 MG DAILY
     Route: 041
     Dates: start: 20050601, end: 20050608
  2. MARZULENE S (LEVOGLUTAMIDE/SODIUM GUALENATE) [Concomitant]
  3. CELESTAMINE TAB [Concomitant]
  4. LOXONIN (LOXOPROFEN SODIUM) [Concomitant]

REACTIONS (5)
  - COUGH [None]
  - DYSPNOEA [None]
  - INTERSTITIAL LUNG DISEASE [None]
  - OEDEMA PERIPHERAL [None]
  - PLEURAL EFFUSION [None]
